FAERS Safety Report 4861834-2 (Version None)
Quarter: 2005Q4

REPORT INFORMATION
  Report Type: 
  Country: None (occurrence: None)
  Receive Date: 20051130
  Receipt Date: 20050204
  Transmission Date: 20060501
  Serious: Yes (Hospitalization)
  Sender: FDA-Public Use
  Company Number: 2005017218

PATIENT
  Age: 41 Year
  Sex: Male
  Weight: 71.1 kg

DRUGS (4)
  1. ZYVOX [Suspect]
     Indication: STAPHYLOCOCCAL INFECTION
     Dosage: 1200 MG (600 MG, Q 12H INTERVAL: EVERY 12 HOUR), ORAL
     Route: 048
     Dates: start: 20050116
  2. FENTANYL [Concomitant]
  3. IRON (IRON) [Concomitant]
  4. VANCOMYCIN [Concomitant]

REACTIONS (1)
  - NEUTROPENIA [None]
